FAERS Safety Report 4673205-2 (Version None)
Quarter: 2005Q2

REPORT INFORMATION
  Report Type: 
  Country: None (occurrence: None)
  Receive Date: 20050525
  Receipt Date: 20050114
  Transmission Date: 20051028
  Serious: No
  Sender: FDA-Public Use
  Company Number: US-GLAXOSMITHKLINE-A0542048A

PATIENT
  Sex: Female

DRUGS (1)
  1. BACTROBAN [Suspect]

REACTIONS (3)
  - ERYTHEMA [None]
  - PAIN [None]
  - SKIN BURNING SENSATION [None]
